FAERS Safety Report 16827421 (Version 1)
Quarter: 2019Q3

REPORT INFORMATION
  Report Type: Spontaneous
  Country: US (occurrence: US)
  Receive Date: 20190729
  Receipt Date: 20190729
  Transmission Date: 20191005
  Serious: No
  Sender: FDA-Public Use
  Company Number: None

PATIENT
  Age: 37 Year
  Sex: Female

DRUGS (1)
  1. MAKENA [Suspect]
     Active Substance: HYDROXYPROGESTERONE CAPROATE
     Indication: PREMATURE LABOUR
     Dosage: ?          OTHER DOSE:275/1.1 MG/ML;?
     Route: 058
     Dates: start: 20190507

REACTIONS (2)
  - Premature delivery [None]
  - Premature baby [None]

NARRATIVE: CASE EVENT DATE: 20190726
